FAERS Safety Report 11239687 (Version 1)
Quarter: 2015Q3

REPORT INFORMATION
  Report Type: Report from Study
  Country: AR (occurrence: AR)
  Receive Date: 20150706
  Receipt Date: 20150706
  Transmission Date: 20151125
  Serious: Yes (Other)
  Sender: FDA-Public Use
  Company Number: PHHY2015AR077051

PATIENT
  Sex: Male

DRUGS (2)
  1. EXFORGE [Suspect]
     Active Substance: AMLODIPINE BESYLATE\VALSARTAN
     Indication: PRODUCT USED FOR UNKNOWN INDICATION
     Dosage: 1 DF, QD (10/60)
     Route: 065
  2. DIOVAN D [Suspect]
     Active Substance: HYDROCHLOROTHIAZIDE\VALSARTAN
     Indication: BLOOD PRESSURE INCREASED
     Dosage: 325 OT, QD (HALF TABLET DAILY)
     Route: 065

REACTIONS (5)
  - Hypertension [Recovering/Resolving]
  - Feeling abnormal [Unknown]
  - Wrong technique in product usage process [Unknown]
  - Arrhythmia [Unknown]
  - Malaise [Unknown]
